FAERS Safety Report 4381455-8 (Version None)
Quarter: 2004Q2

REPORT INFORMATION
  Report Type: 
  Country: None (occurrence: None)
  Receive Date: 20040618
  Receipt Date: 20040618
  Transmission Date: 20050107
  Serious: No
  Sender: FDA-Public Use
  Company Number: None

PATIENT
  Age: 58 Year
  Sex: Female

DRUGS (2)
  1. ADRIAMYCIN [Suspect]
  2. CYTOXAN [Suspect]

REACTIONS (11)
  - ANAEMIA [None]
  - ASTHENIA [None]
  - DEHYDRATION [None]
  - GLYCOSURIA [None]
  - HAEMATURIA [None]
  - LEUKOCYTOSIS [None]
  - NAUSEA [None]
  - ORTHOSTATIC HYPOTENSION [None]
  - PYREXIA [None]
  - VOMITING [None]
  - WHITE BLOOD CELLS URINE POSITIVE [None]
